FAERS Safety Report 9421979 (Version 1)
Quarter: 2013Q3

REPORT INFORMATION
  Report Type: Spontaneous
  Country: US (occurrence: US)
  Receive Date: 20130726
  Receipt Date: 20130726
  Transmission Date: 20140515
  Serious: Yes (Disabling, Other)
  Sender: FDA-Public Use
  Company Number: US-ASTRAZENECA-2013SE55190

PATIENT
  Age: 50 Year
  Sex: Female
  Weight: 81.6 kg

DRUGS (28)
  1. NEXIUM [Suspect]
     Indication: GASTROOESOPHAGEAL REFLUX DISEASE
     Route: 048
     Dates: start: 2002, end: 2006
  2. NEXIUM [Suspect]
     Indication: GASTROOESOPHAGEAL REFLUX DISEASE
     Route: 048
     Dates: start: 2008
  3. NEXIUM [Suspect]
     Indication: GASTROOESOPHAGEAL REFLUX DISEASE
     Route: 048
     Dates: start: 201004
  4. OMEPRAZOLE [Suspect]
     Indication: GASTROOESOPHAGEAL REFLUX DISEASE
     Route: 048
     Dates: start: 2006, end: 2006
  5. CRESTOR [Suspect]
     Indication: BLOOD CHOLESTEROL INCREASED
     Route: 048
     Dates: start: 2000
  6. ALLEGRA [Concomitant]
     Indication: HYPERSENSITIVITY
     Route: 048
     Dates: start: 1998
  7. METHAZOLAMIDE [Concomitant]
     Indication: GLAUCOMA
     Route: 048
     Dates: start: 2004
  8. FLURIBIPROFEN [Concomitant]
     Indication: GLAUCOMA
     Dosage: AT NIGHT
     Route: 050
     Dates: start: 1985
  9. CARDIZEM LA [Concomitant]
     Indication: CHEST PAIN
     Route: 048
     Dates: start: 1998
  10. BRIMONIDINE [Concomitant]
     Indication: GLAUCOMA
     Dosage: THREE TIMES A DAY
     Route: 050
     Dates: start: 1985
  11. LOTEMAX [Concomitant]
     Indication: GLAUCOMA
     Dosage: THREE TIMES A DAY
     Route: 050
     Dates: start: 1985
  12. DORDOLEMIDE/TIMOLOL [Concomitant]
     Indication: GLAUCOMA
     Dosage: 2%/0.5% THREE TIMES A DAY
     Route: 050
     Dates: start: 1985
  13. ALPHAGAN P [Concomitant]
     Indication: GLAUCOMA
     Dosage: 0.15% THREE TIMES A DAY
     Route: 050
     Dates: start: 1985
  14. BETOPTIC [Concomitant]
     Indication: GLAUCOMA
     Dosage: 0.25% THREE TIMES A DAY
     Route: 050
     Dates: start: 1985
  15. AZOPT [Concomitant]
     Indication: GLAUCOMA
     Dosage: 0.15% THREE TIMES A DAY
     Route: 050
     Dates: start: 1985
  16. COMBIGAN [Concomitant]
     Indication: GLAUCOMA
     Dosage: 0.2%/0.5% TWO TIMES A DAY
     Route: 050
     Dates: start: 1985
  17. KLOR CON [Concomitant]
     Indication: THERAPEUTIC PROCEDURE
     Route: 048
     Dates: start: 2003
  18. SKELAXIN [Concomitant]
     Indication: MUSCULOSKELETAL DISCOMFORT
     Route: 048
     Dates: start: 1998
  19. LYRICA [Concomitant]
     Indication: FIBROMYALGIA
     Route: 048
     Dates: start: 2012
  20. NAPROXEN [Concomitant]
     Indication: PAIN
     Route: 048
     Dates: start: 2012
  21. OCCUVITE ADULT +50 [Concomitant]
     Indication: EYE DISORDER
     Dosage: DAILY
     Route: 048
     Dates: start: 201307
  22. VITAMIN D3 [Concomitant]
     Indication: VITAMIN SUPPLEMENTATION
     Route: 048
     Dates: start: 201307
  23. CALCIUM +D3 [Concomitant]
     Indication: VITAMIN SUPPLEMENTATION
     Route: 048
     Dates: start: 201307
  24. VITAMIN B COMPLEX [Concomitant]
     Indication: SUPPLEMENTATION THERAPY
     Dosage: DAILY
     Route: 048
     Dates: start: 201307
  25. ZINC [Concomitant]
     Indication: SUPPLEMENTATION THERAPY
     Route: 048
     Dates: start: 201307
  26. COMPLETE MULTI VITAMIN 50+ [Concomitant]
     Indication: SUPPLEMENTATION THERAPY
     Dosage: DAILY
     Route: 048
     Dates: start: 201307
  27. ACIPHEX RX [Concomitant]
     Dates: start: 2006, end: 2006
  28. ZANTAC [Concomitant]

REACTIONS (10)
  - Blindness unilateral [Unknown]
  - Disability [Unknown]
  - Hiatus hernia [Unknown]
  - Vitamin D deficiency [Not Recovered/Not Resolved]
  - Intervertebral disc protrusion [Not Recovered/Not Resolved]
  - Fibromyalgia [Not Recovered/Not Resolved]
  - Heart rate irregular [Unknown]
  - Gastrooesophageal reflux disease [Unknown]
  - Intentional drug misuse [Unknown]
  - Drug ineffective [Unknown]
